FAERS Safety Report 9774360 (Version 20)
Quarter: 2016Q4

REPORT INFORMATION
  Report Type: Report from Study
  Country: CA (occurrence: CA)
  Receive Date: 20131220
  Receipt Date: 20161019
  Transmission Date: 20170207
  Serious: Yes (Other)
  Sender: FDA-Public Use
  Company Number: CA-ROCHE-1317634

PATIENT
  Age: 55 Year
  Sex: Female
  Weight: 53 kg

DRUGS (9)
  1. HERCEPTIN [Suspect]
     Active Substance: TRASTUZUMAB
     Indication: HER-2 POSITIVE BREAST CANCER
     Route: 042
     Dates: start: 20131120
  2. TAXOTERE [Suspect]
     Active Substance: DOCETAXEL
     Indication: BREAST CANCER
     Route: 065
     Dates: start: 20131120
  3. TYKERB [Suspect]
     Active Substance: LAPATINIB DITOSYLATE
     Indication: BREAST CANCER
     Route: 065
     Dates: start: 201306, end: 201311
  4. PERJETA [Suspect]
     Active Substance: PERTUZUMAB
     Route: 042
     Dates: start: 20131209
  5. FEMARA [Concomitant]
     Active Substance: LETROZOLE
  6. TAXOL [Suspect]
     Active Substance: PACLITAXEL
     Indication: PRODUCT USED FOR UNKNOWN INDICATION
     Route: 065
  7. PERJETA [Suspect]
     Active Substance: PERTUZUMAB
     Indication: HER-2 POSITIVE BREAST CANCER
     Route: 042
     Dates: start: 20131119
  8. XELODA [Suspect]
     Active Substance: CAPECITABINE
     Indication: BREAST CANCER
     Route: 048
     Dates: start: 201306, end: 201311
  9. XGEVA [Concomitant]
     Active Substance: DENOSUMAB
     Route: 065
     Dates: start: 201308

REACTIONS (35)
  - Localised infection [Not Recovered/Not Resolved]
  - Haemoglobin decreased [Not Recovered/Not Resolved]
  - Neutrophil count decreased [Not Recovered/Not Resolved]
  - Mean cell volume increased [Unknown]
  - Epistaxis [Recovered/Resolved]
  - Pruritus [Unknown]
  - Dry skin [Unknown]
  - Dermatitis [Not Recovered/Not Resolved]
  - Malignant neoplasm progression [Unknown]
  - Carcinoembryonic antigen increased [Not Recovered/Not Resolved]
  - Blood test abnormal [Not Recovered/Not Resolved]
  - Tooth disorder [Unknown]
  - Urinary tract infection [Unknown]
  - Oropharyngeal pain [Not Recovered/Not Resolved]
  - Blood pressure fluctuation [Unknown]
  - Muscle spasms [Unknown]
  - Diarrhoea [Not Recovered/Not Resolved]
  - Hyperaesthesia [Not Recovered/Not Resolved]
  - Mean platelet volume decreased [Not Recovered/Not Resolved]
  - Mean cell haemoglobin increased [Unknown]
  - Chest discomfort [Unknown]
  - Hypoaesthesia [Not Recovered/Not Resolved]
  - Nausea [Not Recovered/Not Resolved]
  - Blood lactate dehydrogenase increased [Not Recovered/Not Resolved]
  - Haematocrit decreased [Not Recovered/Not Resolved]
  - Blood magnesium decreased [Unknown]
  - Adenoma benign [Recovering/Resolving]
  - Red blood cell count decreased [Not Recovered/Not Resolved]
  - Red cell distribution width increased [Not Recovered/Not Resolved]
  - Lymphocyte count increased [Not Recovered/Not Resolved]
  - Haemorrhoids [Unknown]
  - Mouth ulceration [Unknown]
  - Carbohydrate antigen 15-3 increased [Unknown]
  - Faeces soft [Not Recovered/Not Resolved]
  - Gastrointestinal motility disorder [Unknown]

NARRATIVE: CASE EVENT DATE: 201310
